FAERS Safety Report 12173457 (Version 2)
Quarter: 2016Q1

REPORT INFORMATION
  Report Type: Spontaneous
  Country: US (occurrence: US)
  Receive Date: 20160311
  Receipt Date: 20160317
  Transmission Date: 20160526
  Serious: No
  Sender: FDA-Public Use
  Company Number: US-GALDERMA-US15005343

PATIENT
  Age: 75 Year
  Sex: Female

DRUGS (6)
  1. PHYTOMER MOISTURIZER [Concomitant]
     Route: 061
  2. DERMALOGICA CLEANSING GEL [Concomitant]
     Indication: THERAPEUTIC SKIN CARE TOPICAL
     Route: 061
  3. NEUTROGENA SUNBLOCK SPF 55 [Concomitant]
     Indication: PROPHYLAXIS AGAINST SOLAR RADIATION
     Route: 061
  4. SUN BLOCK [Concomitant]
     Active Substance: HOMOSALATE\OCTINOXATE\OXYBENZONE\TITANIUM DIOXIDE
     Route: 061
  5. TRI-LUMA [Suspect]
     Active Substance: FLUOCINOLONE ACETONIDE\HYDROQUINONE\TRETINOIN
     Indication: CHLOASMA
     Route: 061
     Dates: start: 20150605
  6. PHYTOMER SERUM [Concomitant]
     Route: 061

REACTIONS (4)
  - Erythema [Recovered/Resolved]
  - Skin hyperpigmentation [Recovered/Resolved]
  - Dry skin [Unknown]
  - Skin burning sensation [Unknown]

NARRATIVE: CASE EVENT DATE: 201505
